FAERS Safety Report 8984824 (Version 1)
Quarter: 2012Q4

REPORT INFORMATION
  Report Type: 
  Country: CN (occurrence: CN)
  Receive Date: 20121226
  Receipt Date: 20121226
  Transmission Date: 20130627
  Serious: Yes (Other)
  Sender: FDA-Public Use
  Company Number: CN-BAYER-2012-133037

PATIENT
  Age: 59 Year
  Sex: Male
  Weight: 50 kg

DRUGS (1)
  1. CIPROBAY [Suspect]
     Indication: LUNG INFECTION
     Dosage: 200 ml, QD
     Route: 041
     Dates: start: 20100714, end: 20100718

REACTIONS (5)
  - Leukopenia [Recovering/Resolving]
  - Granulocytopenia [Recovering/Resolving]
  - Vomiting [Recovering/Resolving]
  - Dizziness [Recovering/Resolving]
  - Nausea [Recovering/Resolving]
